FAERS Safety Report 13358503 (Version 1)
Quarter: 2017Q1

REPORT INFORMATION
  Report Type: Spontaneous
  Country: DE (occurrence: DE)
  Receive Date: 20170322
  Receipt Date: 20170322
  Transmission Date: 20170429
  Serious: No
  Sender: FDA-Public Use
  Company Number: DE-LUPIN PHARMACEUTICALS INC.-2017-00685

PATIENT
  Age: 34 Year
  Sex: Female

DRUGS (1)
  1. QUETIAPIN-HORMOSAN [Suspect]
     Active Substance: QUETIAPINE FUMARATE
     Indication: PRODUCT USED FOR UNKNOWN INDICATION
     Dosage: 200 MG,UNK,
     Route: 065

REACTIONS (2)
  - No adverse event [Unknown]
  - Exposure during pregnancy [Unknown]
